FAERS Safety Report 19366618 (Version 1)
Quarter: 2021Q2

REPORT INFORMATION
  Report Type: Spontaneous
  Country: JP (occurrence: JP)
  Receive Date: 20210603
  Receipt Date: 20210603
  Transmission Date: 20210717
  Serious: Yes (Life-Threatening, Hospitalization, Other)
  Sender: FDA-Public Use
  Company Number: JP-SA-2021SA183095

PATIENT
  Age: 73 Year
  Sex: Female
  Weight: 39 kg

DRUGS (8)
  1. BAYASPIRIN [Concomitant]
     Active Substance: ASPIRIN
     Dosage: UNK
     Dates: start: 20150724, end: 20201118
  2. TEPRENONE [Concomitant]
     Active Substance: TEPRENONE
     Dosage: UNK
     Dates: start: 20150724, end: 20201118
  3. RENAGEL [Suspect]
     Active Substance: SEVELAMER HYDROCHLORIDE
     Dosage: 500 MG, TID
     Route: 048
     Dates: start: 20201113, end: 20201118
  4. RENAGEL [Suspect]
     Active Substance: SEVELAMER HYDROCHLORIDE
     Indication: HYPERPHOSPHATAEMIA
     Dosage: 500 MG, TID
     Route: 048
     Dates: start: 2015, end: 20201105
  5. LANTHANUM CARBONATE. [Suspect]
     Active Substance: LANTHANUM CARBONATE
     Indication: HYPERPHOSPHATAEMIA
     Dosage: UNK
     Route: 048
     Dates: start: 20201105, end: 20201113
  6. LANSOPRAZOLE. [Concomitant]
     Active Substance: LANSOPRAZOLE
     Dosage: UNK
     Dates: start: 20150801, end: 20201118
  7. CARVEDILOL. [Concomitant]
     Active Substance: CARVEDILOL
     Dosage: UNK
     Dates: start: 20160517, end: 20201118
  8. ELDECALCITOL [Concomitant]
     Active Substance: ELDECALCITOL
     Dosage: UNK
     Dates: start: 20150724, end: 20201118

REACTIONS (3)
  - Renal cyst infection [Unknown]
  - Large intestine perforation [Recovered/Resolved]
  - Diverticulum intestinal [Unknown]

NARRATIVE: CASE EVENT DATE: 20201106
